FAERS Safety Report 10425311 (Version 2)
Quarter: 2014Q4

REPORT INFORMATION
  Report Type: Spontaneous
  Country: JP (occurrence: JP)
  Receive Date: 20140902
  Receipt Date: 20141020
  Transmission Date: 20150528
  Serious: Yes (Other)
  Sender: FDA-Public Use
  Company Number: PHHY2013JP161848

PATIENT

DRUGS (1)
  1. EXJADE [Suspect]
     Active Substance: DEFERASIROX
     Indication: MYELODYSPLASTIC SYNDROME
     Dosage: UNK
     Route: 065

REACTIONS (6)
  - Renal impairment [Unknown]
  - Myelodysplastic syndrome [Unknown]
  - Oedema [Unknown]
  - Disease progression [Unknown]
  - Rash [Unknown]
  - Disseminated intravascular coagulation [Unknown]
